FAERS Safety Report 18744386 (Version 7)
Quarter: 2025Q1

REPORT INFORMATION
  Report Type: Spontaneous
  Country: US (occurrence: US)
  Receive Date: 20210114
  Receipt Date: 20250103
  Transmission Date: 20250408
  Serious: Yes (Hospitalization, Other)
  Sender: ALEXION PHARMACEUTICALS
  Company Number: 2021A002216

PATIENT
  Age: 55 Year
  Weight: 158.76 kg

DRUGS (49)
  1. FARXIGA [Suspect]
     Active Substance: DAPAGLIFLOZIN PROPANEDIOL
     Indication: Type 2 diabetes mellitus
  2. FARXIGA [Suspect]
     Active Substance: DAPAGLIFLOZIN PROPANEDIOL
     Indication: Weight decreased
     Route: 048
  3. FARXIGA [Suspect]
     Active Substance: DAPAGLIFLOZIN PROPANEDIOL
     Indication: Blood pressure decreased
  4. FARXIGA [Suspect]
     Active Substance: DAPAGLIFLOZIN PROPANEDIOL
     Route: 048
  5. FARXIGA [Suspect]
     Active Substance: DAPAGLIFLOZIN PROPANEDIOL
  6. FARXIGA [Suspect]
     Active Substance: DAPAGLIFLOZIN PROPANEDIOL
     Route: 048
  7. FARXIGA [Suspect]
     Active Substance: DAPAGLIFLOZIN PROPANEDIOL
  8. FARXIGA [Suspect]
     Active Substance: DAPAGLIFLOZIN PROPANEDIOL
     Route: 048
  9. GABAPENTIN [Concomitant]
     Active Substance: GABAPENTIN
     Indication: Seizure
  10. LISINOPRIL [Concomitant]
     Active Substance: LISINOPRIL
     Indication: Hypertension
  11. SIMVASTATIN [Concomitant]
     Active Substance: SIMVASTATIN
  12. METFORMIN [Concomitant]
     Active Substance: METFORMIN HYDROCHLORIDE
  13. HYDROCHLOROTHIAZIDE [Concomitant]
     Active Substance: HYDROCHLOROTHIAZIDE
  14. FLUTICASONE [Concomitant]
     Active Substance: FLUTICASONE
  15. ATORVASTATIN [Concomitant]
     Active Substance: ATORVASTATIN
  16. TAMSULOSIN [Concomitant]
     Active Substance: TAMSULOSIN
  17. OXYCODONE [Concomitant]
     Active Substance: OXYCODONE
  18. AMOXICILLIN [Concomitant]
     Active Substance: AMOXICILLIN
  19. JARDIANCE [Concomitant]
     Active Substance: EMPAGLIFLOZIN
  20. AMLODIPINE BESYLATE [Concomitant]
     Active Substance: AMLODIPINE BESYLATE
  21. PREDNISONE [Concomitant]
     Active Substance: PREDNISONE
  22. CYCLOBENZAPRINE [Concomitant]
     Active Substance: CYCLOBENZAPRINE
  23. ASPIRIN [Concomitant]
     Active Substance: ASPIRIN
  24. BUTALBITAL [Concomitant]
     Active Substance: BUTALBITAL
  25. GENTAMICIN [Concomitant]
     Active Substance: GENTAMICIN
  26. VITAMIN D [Concomitant]
     Active Substance: VITAMIN D NOS
  27. IBUPROFEN [Concomitant]
     Active Substance: IBUPROFEN
  28. ACTOS [Concomitant]
     Active Substance: PIOGLITAZONE HYDROCHLORIDE
  29. METFORMIN [Concomitant]
     Active Substance: METFORMIN HYDROCHLORIDE
  30. AMLODIPINE [Concomitant]
     Active Substance: AMLODIPINE BESYLATE
     Indication: Hypertension
  31. TRADJENTA [Concomitant]
     Active Substance: LINAGLIPTIN
  32. NAPROXEN [Concomitant]
     Active Substance: NAPROXEN
  33. ESCITALOPRAM [Concomitant]
     Active Substance: ESCITALOPRAM OXALATE
  34. ALPRAZOLAM [Concomitant]
     Active Substance: ALPRAZOLAM
  35. ISOSORBIDE [Concomitant]
     Active Substance: ISOSORBIDE
  36. CARVEDILOL [Concomitant]
     Active Substance: CARVEDILOL
  37. BACTRIM DS [Concomitant]
     Active Substance: SULFAMETHOXAZOLE\TRIMETHOPRIM
  38. CEPHALEXIN [Concomitant]
     Active Substance: CEPHALEXIN
  39. PIOGLITAZONE [Concomitant]
     Active Substance: PIOGLITAZONE
  40. VALSARTAN [Concomitant]
     Active Substance: VALSARTAN
  41. LINAGLIPTIN [Concomitant]
     Active Substance: LINAGLIPTIN
  42. SERTRALINE HYDROCHLORIDE [Concomitant]
     Active Substance: SERTRALINE HYDROCHLORIDE
  43. METOPROLOL SUCCINATE [Concomitant]
     Active Substance: METOPROLOL SUCCINATE
     Route: 048
  44. METOPROLOL SUCCINATE [Concomitant]
     Active Substance: METOPROLOL SUCCINATE
  45. FLEXERIL [Concomitant]
     Active Substance: CYCLOBENZAPRINE HYDROCHLORIDE
  46. ONDANSETRON [Concomitant]
     Active Substance: ONDANSETRON
  47. OXYCODONE AND ACETAMINOPHEN [Concomitant]
     Active Substance: ACETAMINOPHEN\OXYCODONE HYDROCHLORIDE
  48. HYDROCODONE [Concomitant]
     Active Substance: HYDROCODONE
  49. SERTRALINE [Concomitant]
     Active Substance: SERTRALINE HYDROCHLORIDE

REACTIONS (12)
  - Fournier^s gangrene [Unknown]
  - Acute kidney injury [Unknown]
  - Sepsis [Unknown]
  - Scrotal abscess [Unknown]
  - Renal tubular necrosis [Unknown]
  - Renal failure [Unknown]
  - Chronic kidney disease [Unknown]
  - Hypotension [Unknown]
  - Scrotal pain [Unknown]
  - Wound dehiscence [Unknown]
  - Wound [Unknown]
  - Scrotal injury [Unknown]
